FAERS Safety Report 10345710 (Version 2)
Quarter: 2015Q1

REPORT INFORMATION
  Report Type: Spontaneous
  Country: US (occurrence: US)
  Receive Date: 20140728
  Receipt Date: 20150123
  Transmission Date: 20150720
  Serious: Yes (Other)
  Sender: FDA-Public Use
  Company Number: US-GLAXOSMITHKLINE-A1082812A

PATIENT
  Sex: Male

DRUGS (1)
  1. VOTRIENT [Suspect]
     Active Substance: PAZOPANIB HYDROCHLORIDE
     Indication: RENAL CANCER
     Dosage: 200MG TABLETS, UNKNOWN DOSING
     Route: 065
     Dates: start: 20140220

REACTIONS (4)
  - Contusion [Unknown]
  - Skin discolouration [Unknown]
  - Haemorrhage subcutaneous [Unknown]
  - Nausea [Unknown]

NARRATIVE: CASE EVENT DATE: 2014
